FAERS Safety Report 25601757 (Version 1)
Quarter: 2025Q3

REPORT INFORMATION
  Report Type: Spontaneous
  Country: CA (occurrence: CA)
  Receive Date: 20250724
  Receipt Date: 20250724
  Transmission Date: 20251021
  Serious: Yes (Other)
  Sender: PFIZER
  Company Number: CA-PFIZER INC-202300434683

PATIENT
  Age: 81 Year
  Sex: Male
  Weight: 78 kg

DRUGS (9)
  1. RUXIENCE [Suspect]
     Active Substance: RITUXIMAB-PVVR
     Indication: Granulomatosis with polyangiitis
     Dosage: 705 MG, WEEKLY
     Route: 042
     Dates: start: 20230622, end: 20230630
  2. RUXIENCE [Suspect]
     Active Substance: RITUXIMAB-PVVR
     Dosage: 705 MG, WEEKLY
     Route: 042
     Dates: start: 20230706
  3. RUXIENCE [Suspect]
     Active Substance: RITUXIMAB-PVVR
     Dosage: 705 MG, WEEKLY
     Route: 042
     Dates: start: 20230712
  4. RUXIENCE [Suspect]
     Active Substance: RITUXIMAB-PVVR
     Route: 042
     Dates: start: 20240102, end: 20240102
  5. RUXIENCE [Suspect]
     Active Substance: RITUXIMAB-PVVR
     Route: 042
     Dates: start: 20240708, end: 20240708
  6. RUXIENCE [Suspect]
     Active Substance: RITUXIMAB-PVVR
     Route: 042
     Dates: start: 20250120, end: 20250120
  7. RUXIENCE [Suspect]
     Active Substance: RITUXIMAB-PVVR
     Route: 042
     Dates: start: 20250721
  8. METHOTREXATE [Concomitant]
     Active Substance: METHOTREXATE
  9. PREDNISONE [Concomitant]
     Active Substance: PREDNISONE

REACTIONS (4)
  - Sarcoma [Recovered/Resolved]
  - Weight increased [Unknown]
  - Off label use [Unknown]
  - Inappropriate schedule of product administration [Unknown]

NARRATIVE: CASE EVENT DATE: 20240102
